FAERS Safety Report 8151271-X (Version None)
Quarter: 2012Q1

REPORT INFORMATION
  Report Type: 
  Country: None (occurrence: None)
  Receive Date: 20120220
  Receipt Date: 20120215
  Transmission Date: 20120608
  Serious: No
  Sender: FDA-Public Use
  Company Number: US-BAYER-2012-010686

PATIENT
  Age: 39 Year
  Sex: Female
  Weight: 68.027 kg

DRUGS (1)
  1. ULTRAVIST 150 [Suspect]
     Indication: PAIN
     Dosage: RATE OF 20 CC/SEC
     Route: 042
     Dates: start: 20120131, end: 20120131

REACTIONS (1)
  - RASH [None]
